FAERS Safety Report 7943020-2 (Version None)
Quarter: 2011Q4

REPORT INFORMATION
  Report Type: 
  Country: None (occurrence: None)
  Receive Date: 20111128
  Receipt Date: 20111123
  Transmission Date: 20120403
  Serious: Yes (Other)
  Sender: FDA-Public Use
  Company Number: BR-BAYER-2011-113039

PATIENT
  Age: 43 Year
  Sex: Female
  Weight: 80 kg

DRUGS (11)
  1. CIPROFLOXACIN [Suspect]
     Dosage: 400 MG, BID
     Route: 042
  2. KETOPROFEN [Concomitant]
     Indication: PRODUCT USED FOR UNKNOWN INDICATION
     Dosage: 100 MG, BID
     Route: 042
     Dates: start: 20111108
  3. CIPROFLOXACIN [Suspect]
     Indication: PRODUCT USED FOR UNKNOWN INDICATION
     Dosage: 400 MG, BID
     Route: 042
     Dates: start: 20111108
  4. TRAMADOL HYDROCHLORIDE [Concomitant]
     Indication: PRODUCT USED FOR UNKNOWN INDICATION
     Dosage: 100 MG, QID
     Route: 042
     Dates: start: 20111108, end: 20111120
  5. CIPROFLOXACIN [Suspect]
     Dosage: 400 MG, BID
     Route: 042
  6. MORPHINE SULFATE [Concomitant]
     Indication: PRODUCT USED FOR UNKNOWN INDICATION
     Dosage: 2 MG, Q4HR
     Route: 042
     Dates: start: 20111111
  7. ENOXAPARIN SODIUM [Concomitant]
     Indication: PRODUCT USED FOR UNKNOWN INDICATION
     Dosage: 60 MG, BID
     Route: 058
     Dates: start: 20111111
  8. NOVALGINA [Concomitant]
     Indication: PRODUCT USED FOR UNKNOWN INDICATION
     Dosage: 1 G, QID
     Route: 042
     Dates: start: 20111112, end: 20111113
  9. PANTOPRAZOLE SODIUM [Concomitant]
     Indication: PRODUCT USED FOR UNKNOWN INDICATION
     Dosage: 1 DF, QD
     Route: 048
     Dates: start: 20111108
  10. CLINDAMYCIN HCL [Concomitant]
     Indication: PRODUCT USED FOR UNKNOWN INDICATION
     Dosage: 300 MG, QID
     Route: 042
     Dates: start: 20111111
  11. TYLEX [CODEINE PHOSPHATE,PARACETAMOL] [Concomitant]
     Indication: PRODUCT USED FOR UNKNOWN INDICATION
     Dosage: 30 MG, QID
     Route: 048
     Dates: start: 20111112, end: 20111113

REACTIONS (5)
  - PRURITUS [None]
  - ASTHENIA [None]
  - HYPERSENSITIVITY [None]
  - RESPIRATORY RATE DECREASED [None]
  - URINARY INCONTINENCE [None]
